FAERS Safety Report 8443834-9 (Version None)
Quarter: 2012Q2

REPORT INFORMATION
  Report Type: 
  Country: None (occurrence: None)
  Receive Date: 20120618
  Receipt Date: 20120611
  Transmission Date: 20120825
  Serious: Yes (Other)
  Sender: FDA-Public Use
  Company Number: US-BAYER-2012-058557

PATIENT
  Sex: Female

DRUGS (2)
  1. YAZ [Suspect]
     Dosage: UNK
     Dates: start: 20080101, end: 20090601
  2. YAZ [Suspect]
     Dosage: UNK
     Dates: start: 20100401, end: 20100601

REACTIONS (11)
  - GENERAL PHYSICAL HEALTH DETERIORATION [None]
  - ANXIETY [None]
  - CHEST PAIN [None]
  - EMOTIONAL DISTRESS [None]
  - INJURY [None]
  - ANHEDONIA [None]
  - PULMONARY EMBOLISM [None]
  - DYSPNOEA [None]
  - PAIN [None]
  - VOMITING [None]
  - NAUSEA [None]
